FAERS Safety Report 23422043 (Version 1)
Quarter: 2024Q1

REPORT INFORMATION
  Report Type: Spontaneous
  Country: US (occurrence: US)
  Receive Date: 20240119
  Receipt Date: 20240119
  Transmission Date: 20240410
  Serious: Yes (Other)
  Sender: FDA-Public Use
  Company Number: US-TEVA-VS-3142871

PATIENT
  Age: 65 Year

DRUGS (1)
  1. COPAXONE [Suspect]
     Active Substance: GLATIRAMER ACETATE
     Indication: Multiple sclerosis
     Dosage: LAST DOSE IN NOV 15 2023
     Route: 065
     Dates: start: 2012

REACTIONS (5)
  - Magnetic resonance imaging abnormal [Unknown]
  - Drug ineffective [Unknown]
  - Multiple sclerosis [Unknown]
  - Device malfunction [Unknown]
  - Needle issue [Unknown]

NARRATIVE: CASE EVENT DATE: 20230101
